FAERS Safety Report 16412208 (Version 1)
Quarter: 2019Q2

REPORT INFORMATION
  Report Type: Spontaneous
  Country: US (occurrence: US)
  Receive Date: 20190610
  Receipt Date: 20190610
  Transmission Date: 20190711
  Serious: No
  Sender: FDA-Public Use
  Company Number: US-009507513-1906USA003426

PATIENT
  Sex: Female
  Weight: 54.42 kg

DRUGS (2)
  1. NEXPLANON [Suspect]
     Active Substance: ETONOGESTREL
     Indication: CONTRACEPTION
     Dosage: 1 ROD EVERY 3 YEARS
     Dates: start: 20170710
  2. CALCIUM (UNSPECIFIED) [Concomitant]
     Active Substance: CALCIUM

REACTIONS (3)
  - Device deployment issue [Not Recovered/Not Resolved]
  - Implant site scar [Not Recovered/Not Resolved]
  - Device breakage [Not Recovered/Not Resolved]

NARRATIVE: CASE EVENT DATE: 20170710
